FAERS Safety Report 18527227 (Version 2)
Quarter: 2020Q4

REPORT INFORMATION
  Report Type: Report from Study
  Country: US (occurrence: US)
  Receive Date: 20201120
  Receipt Date: 20201207
  Transmission Date: 20210114
  Serious: Yes (Other)
  Sender: FDA-Public Use
  Company Number: NVSC2020US305175

PATIENT
  Age: 51 Year
  Sex: Female
  Weight: 92.53 kg

DRUGS (1)
  1. GILENYA [Suspect]
     Active Substance: FINGOLIMOD HYDROCHLORIDE
     Indication: RELAPSING MULTIPLE SCLEROSIS
     Dosage: 0.5 MG, QD
     Route: 048

REACTIONS (8)
  - Cough [Unknown]
  - Fatigue [Unknown]
  - COVID-19 [Unknown]
  - Pyrexia [Unknown]
  - Dyspnoea [Unknown]
  - Nasopharyngitis [Unknown]
  - Nasal congestion [Unknown]
  - Diarrhoea [Unknown]

NARRATIVE: CASE EVENT DATE: 20201113
